FAERS Safety Report 9017586 (Version 1)
Quarter: 2013Q1

REPORT INFORMATION
  Report Type: Spontaneous
  Country: US (occurrence: US)
  Receive Date: 20130117
  Receipt Date: 20130117
  Transmission Date: 20140127
  Serious: Yes (Other)
  Sender: FDA-Public Use
  Company Number: US-US-EMD SERONO, INC.-7134121

PATIENT
  Sex: Female
  Weight: 43 kg

DRUGS (1)
  1. REBIF [Suspect]
     Indication: MULTIPLE SCLEROSIS
     Route: 058
     Dates: start: 20111026

REACTIONS (4)
  - Weight decreased [Not Recovered/Not Resolved]
  - Bacterial infection [Recovered/Resolved]
  - Hair disorder [Not Recovered/Not Resolved]
  - Injection site erythema [Not Recovered/Not Resolved]
